FAERS Safety Report 8604360-7 (Version None)
Quarter: 2012Q3

REPORT INFORMATION
  Report Type: 
  Country: None (occurrence: None)
  Receive Date: 20120820
  Receipt Date: 20060410
  Transmission Date: 20120928
  Serious: Yes (Hospitalization)
  Sender: FDA-Public Use
  Company Number: GB-009507513-2006-140455-NL

PATIENT

DRUGS (2)
  1. IMPLANON [Suspect]
     Indication: CONTRACEPTION
     Dosage: CONTINUING: NO
     Dates: start: 20041020, end: 20060329
  2. VENLAFAXINE HYDROCHOLRIDE [Concomitant]
     Indication: AFFECTIVE DISORDER
     Dosage: UNK DF, UNK
     Route: 048

REACTIONS (1)
  - BENIGN INTRACRANIAL HYPERTENSION [None]
